FAERS Safety Report 8075691-7 (Version None)
Quarter: 2012Q1

REPORT INFORMATION
  Report Type: 
  Country: None (occurrence: None)
  Receive Date: 20120127
  Receipt Date: 20120120
  Transmission Date: 20120608
  Serious: Yes (Hospitalization)
  Sender: FDA-Public Use
  Company Number: GB-ASTELLAS-2012EU000040

PATIENT
  Sex: Female

DRUGS (3)
  1. ESOMEPRAZOLE SODIUM [Suspect]
     Dosage: UNK
     Route: 065
  2. TACROLIMUS [Suspect]
     Dosage: UNK
     Route: 065
  3. CINACALCET HYDROCHLORIDE [Suspect]
     Dosage: UNK
     Route: 065

REACTIONS (2)
  - HYPONATRAEMIA [None]
  - INAPPROPRIATE ANTIDIURETIC HORMONE SECRETION [None]
